FAERS Safety Report 5221293-7 (Version None)
Quarter: 2007Q1

REPORT INFORMATION
  Report Type: 
  Country: None (occurrence: None)
  Receive Date: 20070126
  Receipt Date: 20070117
  Transmission Date: 20070707
  Serious: Yes (Disabling)
  Sender: FDA-Public Use
  Company Number: NO-PFIZER INC-2006147628

PATIENT
  Age: 70 Year
  Sex: Female

DRUGS (7)
  1. LIPITOR [Suspect]
     Indication: BLOOD CHOLESTEROL INCREASED
     Route: 048
     Dates: start: 19960101, end: 20050101
  2. ALBYL-E [Concomitant]
     Route: 048
  3. SELO-ZOK [Concomitant]
     Route: 048
  4. NITROGLYCERIN [Concomitant]
     Route: 048
  5. PARACETAMOL [Concomitant]
     Route: 048
  6. NSAID'S [Concomitant]
     Route: 048
  7. COX-2 INHIBITORS [Concomitant]

REACTIONS (2)
  - CONFUSIONAL STATE [None]
  - MEMORY IMPAIRMENT [None]
